FAERS Safety Report 11118859 (Version 3)
Quarter: 2015Q2

REPORT INFORMATION
  Report Type: Report from Study
  Country: GR (occurrence: GR)
  Receive Date: 20150518
  Receipt Date: 20150604
  Transmission Date: 20150821
  Serious: Yes (Other)
  Sender: FDA-Public Use
  Company Number: GR-EMD SERONO-8024761

PATIENT
  Age: 63 Year
  Sex: Male
  Weight: 80 kg

DRUGS (1)
  1. REBIF [Suspect]
     Active Substance: INTERFERON BETA-1A
     Indication: MULTIPLE SCLEROSIS
     Route: 058
     Dates: start: 1999, end: 201505

REACTIONS (7)
  - Haematocrit decreased [Recovering/Resolving]
  - Pyrexia [Recovered/Resolved]
  - Oedema peripheral [Recovering/Resolving]
  - Gamma-glutamyltransferase increased [Recovering/Resolving]
  - Inappropriate schedule of drug administration [Unknown]
  - Transaminases increased [Recovering/Resolving]
  - Chills [Recovered/Resolved]

NARRATIVE: CASE EVENT DATE: 201505
